FAERS Safety Report 5250085-8 (Version None)
Quarter: 2007Q1

REPORT INFORMATION
  Report Type: 
  Country: None (occurrence: None)
  Receive Date: 20070228
  Receipt Date: 20060201
  Transmission Date: 20070707
  Serious: No
  Sender: FDA-Public Use
  Company Number: US-GLAXOSMITHKLINE-A0592012A

PATIENT
  Age: 7 Year
  Sex: Male
  Weight: 22.7 kg

DRUGS (11)
  1. LAMICTAL [Suspect]
     Indication: DRUG USE FOR UNKNOWN INDICATION
     Route: 048
     Dates: start: 20051227, end: 20060131
  2. CAPTOPRIL [Concomitant]
     Dosage: 18.5MG TWICE PER DAY
     Route: 065
  3. NORVASC [Concomitant]
     Dosage: 5MG TWICE PER DAY
     Route: 065
  4. LABETALOL HCL [Concomitant]
     Dosage: 50MG TWICE PER DAY
     Route: 065
  5. LASIX [Concomitant]
     Dosage: 2.5ML PER DAY
     Route: 065
  6. ARANESP [Concomitant]
     Dosage: .6CC EVERY TWO WEEKS
     Route: 042
  7. BICITRA [Concomitant]
     Dosage: 30CC TWICE PER DAY
     Route: 065
  8. CALCIUM CARBONATE [Concomitant]
     Dosage: 10CC TWICE PER DAY
     Route: 065
  9. CALCITRIOL [Concomitant]
     Dosage: .25MCG PER DAY
     Route: 065
  10. SAIZEN [Concomitant]
     Dosage: 3.5ML SEE DOSAGE TEXT
     Route: 065
  11. FLONASE [Concomitant]
     Route: 045

REACTIONS (9)
  - FATIGUE [None]
  - LETHARGY [None]
  - LIP DRY [None]
  - LIP EXFOLIATION [None]
  - MEDICATION ERROR [None]
  - PRURITUS [None]
  - RASH [None]
  - STOMATITIS [None]
  - URTICARIA [None]
